FAERS Safety Report 5530655-X (Version None)
Quarter: 2007Q4

REPORT INFORMATION
  Report Type: 
  Country: None (occurrence: None)
  Receive Date: 20071130
  Receipt Date: 20071121
  Transmission Date: 20080405
  Serious: Yes (Hospitalization, Other)
  Sender: FDA-Public Use
  Company Number: B0497687A

PATIENT
  Age: 86 Year
  Sex: Female
  Weight: 70 kg

DRUGS (2)
  1. ARIXTRA [Suspect]
     Indication: PHLEBITIS
     Route: 058
     Dates: start: 20071115, end: 20071118
  2. LOVENOX [Concomitant]
     Dosage: .4ML SEE DOSAGE TEXT
     Route: 058
     Dates: start: 20071118

REACTIONS (3)
  - HAEMOGLOBIN DECREASED [None]
  - SKIN NECROSIS [None]
  - SUBCUTANEOUS HAEMATOMA [None]
